FAERS Safety Report 11030988 (Version 1)
Quarter: 2015Q2

REPORT INFORMATION
  Report Type: Spontaneous
  Country: US (occurrence: None)
  Receive Date: 20150414
  Receipt Date: 20150414
  Transmission Date: 20150821
  Serious: Yes (Other)
  Sender: FDA-Public Use
  Company Number: None

PATIENT
  Age: 43 Year
  Sex: Male
  Weight: 124 kg

DRUGS (11)
  1. FUROSEMIDE. [Concomitant]
     Active Substance: FUROSEMIDE
  2. PLAVIX [Concomitant]
     Active Substance: CLOPIDOGREL BISULFATE
  3. COREG [Concomitant]
     Active Substance: CARVEDILOL
  4. CORRECTION FORMULA ASPART INSULIN [Concomitant]
  5. CUBICIN [Suspect]
     Active Substance: DAPTOMYCIN
     Indication: BACTERAEMIA
     Dosage: 750MG, QD, INTRAVENOUS
     Route: 042
     Dates: start: 20150327, end: 20150330
  6. DETEMIR INSULIN [Concomitant]
  7. PANTOPRAZOLE [Concomitant]
     Active Substance: PANTOPRAZOLE SODIUM
  8. HEPARIN [Concomitant]
     Active Substance: HEPARIN SODIUM
  9. CORRECTION FORMULA ASPART INSULIN [Concomitant]
  10. ASA [Concomitant]
     Active Substance: ASPIRIN
  11. GLIPIZIDE. [Concomitant]
     Active Substance: GLIPIZIDE

REACTIONS (1)
  - Rash [None]

NARRATIVE: CASE EVENT DATE: 20150330
